FAERS Safety Report 8129221 (Version 7)
Quarter: 2014Q1

REPORT INFORMATION
  Report Type: Spontaneous
  Country: US (occurrence: US)
  Receive Date: 20110909
  Receipt Date: 20140307
  Transmission Date: 20141002
  Serious: Yes (Hospitalization, Other)
  Sender: FDA-Public Use
  Company Number: US-009507513-1109USA00698

PATIENT
  Sex: Female
  Weight: 66.68 kg

DRUGS (4)
  1. FOSAMAX [Suspect]
     Indication: OSTEOPOROSIS
     Dosage: 70 MG, QW
     Route: 048
     Dates: start: 20041206, end: 200508
  2. FOSAMAX PLUS D [Suspect]
     Indication: OSTEOPOROSIS
     Dosage: 70 MG, QW
     Route: 048
     Dates: start: 20050908, end: 200910
  3. MK-9278 [Concomitant]
     Dosage: 630 MG, QD
     Route: 048
     Dates: start: 200412
  4. CALCIUM (UNSPECIFIED) (+) VITAMIN D (UNSPECIFIED) [Concomitant]
     Dosage: 1260 MG, QD
     Route: 048
     Dates: start: 200412

REACTIONS (93)
  - Femur fracture [Unknown]
  - Intramedullary rod insertion [Unknown]
  - Device failure [Unknown]
  - Hip arthroplasty [Unknown]
  - Type 2 diabetes mellitus [Unknown]
  - Duodenitis [Recovered/Resolved]
  - Malignant melanoma [Unknown]
  - Hypertension [Unknown]
  - Femur fracture [Unknown]
  - Ovarian fibroma [Unknown]
  - Pelvic adhesions [Unknown]
  - Urinary tract disorder [Unknown]
  - Urinary tract infection [Unknown]
  - Depression [Unknown]
  - Hypokalaemia [Unknown]
  - Lipoma [Unknown]
  - Hiatus hernia [Unknown]
  - Duodenal polyp [Unknown]
  - Pelvic abscess [Unknown]
  - Loss of consciousness [Unknown]
  - Bradycardia [Unknown]
  - Urinary tract infection [Unknown]
  - Dehydration [Unknown]
  - Hypophagia [Unknown]
  - Pelvic adhesions [Unknown]
  - Transfusion [Unknown]
  - Coronary arterial stent insertion [Unknown]
  - Gastrointestinal polyp haemorrhage [Unknown]
  - Eye operation [Unknown]
  - Femur fracture [Unknown]
  - Gastrooesophageal reflux disease [Unknown]
  - Nausea [Unknown]
  - Vomiting [Unknown]
  - Urinary tract infection [Unknown]
  - Spinal osteoarthritis [Unknown]
  - Osteopenia [Unknown]
  - Decreased appetite [Recovering/Resolving]
  - Personality change [Unknown]
  - Cough [Unknown]
  - Weight increased [Unknown]
  - Dyslipidaemia [Unknown]
  - Osteoarthritis [Unknown]
  - Arthritis [Unknown]
  - Exostosis [Unknown]
  - Osteoarthritis [Unknown]
  - Macular degeneration [Unknown]
  - Lung disorder [Unknown]
  - Craniocerebral injury [Unknown]
  - Contusion [Unknown]
  - Weight decreased [Unknown]
  - Pulmonary mass [Unknown]
  - Polyuria [Unknown]
  - Weight increased [Unknown]
  - Chronic obstructive pulmonary disease [Not Recovered/Not Resolved]
  - Nasal septum deviation [Unknown]
  - Micturition urgency [Unknown]
  - Urinary incontinence [Unknown]
  - Gait disturbance [Unknown]
  - Coronary artery disease [Unknown]
  - Weight decreased [Unknown]
  - Carotid artery stenosis [Unknown]
  - Carotid artery disease [Unknown]
  - Peptic ulcer [Unknown]
  - Fall [Unknown]
  - Skeletal injury [Unknown]
  - Elbow operation [Unknown]
  - Wrist surgery [Unknown]
  - Tachycardia [Unknown]
  - Spinal column stenosis [Unknown]
  - Anxiety [Unknown]
  - Leukocytosis [Recovered/Resolved]
  - Petechiae [Unknown]
  - Duodenal polyp [Unknown]
  - Cardiac valve disease [Unknown]
  - Hypokalaemia [Unknown]
  - Gait disturbance [Unknown]
  - Dyspnoea exertional [Unknown]
  - Fatigue [Unknown]
  - Chest pain [Unknown]
  - Urinary tract infection [Unknown]
  - Sleep disorder [Unknown]
  - Apnoea [Unknown]
  - Weight increased [Unknown]
  - Pain in extremity [Unknown]
  - Pain in extremity [Unknown]
  - Constipation [Unknown]
  - Abdominal pain lower [Unknown]
  - Pain in extremity [Unknown]
  - Back pain [Not Recovered/Not Resolved]
  - Nausea [Recovered/Resolved]
  - Vomiting [Recovered/Resolved]
  - Abdominal pain [Unknown]
  - Oesophagitis [Unknown]
